FAERS Safety Report 7769998-8 (Version None)
Quarter: 2011Q3

REPORT INFORMATION
  Report Type: 
  Country: None (occurrence: None)
  Receive Date: 20110922
  Receipt Date: 20100826
  Transmission Date: 20111222
  Serious: No
  Sender: FDA-Public Use
  Company Number: US-ASTRAZENECA-2007UW21482

PATIENT
  Age: 58 Year
  Sex: Male
  Weight: 110.7 kg

DRUGS (14)
  1. HALDOL [Concomitant]
     Dates: start: 20030101, end: 20060101
  2. ZOLOFT [Concomitant]
     Dates: start: 20070101, end: 20070101
  3. ENTRIC COATED ASPIRIN [Concomitant]
     Route: 065
     Dates: start: 20001121
  4. LIPITOR [Concomitant]
     Route: 065
     Dates: start: 20040223
  5. SEROQUEL [Suspect]
     Route: 048
     Dates: start: 20060818
  6. SYNTHROID [Concomitant]
     Dosage: 0.1
     Route: 065
     Dates: start: 20001121
  7. CARDIZEM [Concomitant]
     Route: 065
     Dates: start: 20001121
  8. GEODON [Concomitant]
     Dates: start: 20070101
  9. RISPERDAL [Concomitant]
     Indication: ANXIETY
     Dosage: 2-4 MG
     Dates: start: 20030101, end: 20050101
  10. SEROQUEL [Suspect]
     Indication: ANXIETY
     Dosage: 100-200 MG
     Route: 048
     Dates: start: 20050701, end: 20070701
  11. SEROQUEL [Suspect]
     Indication: DEPRESSION
     Dosage: 100-200 MG
     Route: 048
     Dates: start: 20050701, end: 20070701
  12. SEROQUEL [Suspect]
     Route: 048
     Dates: start: 20060818
  13. XANAX [Concomitant]
     Dosage: 0.25 MG HS, TWICE DAILY
     Route: 065
     Dates: start: 19910711
  14. RISPERDAL [Concomitant]
     Indication: DEPRESSION
     Dosage: 2-4 MG
     Dates: start: 20030101, end: 20050101

REACTIONS (4)
  - DIABETES MELLITUS [None]
  - DIABETIC COMPLICATION [None]
  - TYPE 2 DIABETES MELLITUS [None]
  - OBESITY [None]
